FAERS Safety Report 7326644-5 (Version None)
Quarter: 2011Q1

REPORT INFORMATION
  Report Type: 
  Country: None (occurrence: None)
  Receive Date: 20110302
  Receipt Date: 20110217
  Transmission Date: 20110831
  Serious: Yes (Life-Threatening, Hospitalization)
  Sender: FDA-Public Use
  Company Number: AT-ACTELION-A-CH2010-42041

PATIENT
  Sex: Female
  Weight: 45 kg

DRUGS (9)
  1. EUSAPRIM [Concomitant]
  2. SPIRONOLACTONE [Concomitant]
  3. BISOPROLOL FUMARATE [Concomitant]
  4. IMMUNE GLOBULIN NOS [Suspect]
     Dosage: UNK
     Dates: start: 20101022
  5. SILDENAFIL [Concomitant]
  6. FUROSEMIDE [Concomitant]
  7. URSO FALK [Concomitant]
  8. TRACLEER [Suspect]
     Indication: PULMONARY ARTERIAL HYPERTENSION
     Dosage: 62.5 MG, BID
     Route: 048
     Dates: start: 20101023, end: 20101027
  9. RAMIPRIL [Concomitant]

REACTIONS (8)
  - LEUKOPENIA [None]
  - CAROTID ARTERY OCCLUSION [None]
  - CEREBROVASCULAR ACCIDENT [None]
  - ACUTE MYELOID LEUKAEMIA [None]
  - VOMITING [None]
  - INFECTION [None]
  - PYREXIA [None]
  - HEMIPLEGIA [None]
